FAERS Safety Report 18945432 (Version 1)
Quarter: 2021Q1

REPORT INFORMATION
  Report Type: Spontaneous
  Country: US (occurrence: US)
  Receive Date: 20210226
  Receipt Date: 20210226
  Transmission Date: 20210420
  Serious: Yes (Other)
  Sender: FDA-Public Use
  Company Number: US-BAYER-2021-079566

PATIENT
  Age: 50 Year
  Sex: Male

DRUGS (1)
  1. BETASERON [Suspect]
     Active Substance: INTERFERON BETA-1B
     Indication: MULTIPLE SCLEROSIS
     Dosage: 0.25 MG, QOD
     Route: 058
     Dates: start: 2011

REACTIONS (8)
  - Asthenia [None]
  - Depression [None]
  - Product dose omission issue [None]
  - Influenza like illness [Recovered/Resolved]
  - Insomnia [None]
  - Multiple sclerosis relapse [None]
  - Decreased interest [None]
  - Visual impairment [None]

NARRATIVE: CASE EVENT DATE: 201111
